FAERS Safety Report 18527820 (Version 3)
Quarter: 2022Q4

REPORT INFORMATION
  Report Type: Spontaneous
  Country: CN (occurrence: CN)
  Receive Date: 20201120
  Receipt Date: 20221111
  Transmission Date: 20230112
  Serious: Yes (Death, Other)
  Sender: FDA-Public Use
  Company Number: CN-TAKEDA-2020TUS049721

PATIENT
  Age: 63 Year
  Sex: Female

DRUGS (7)
  1. NINLARO [Suspect]
     Active Substance: IXAZOMIB CITRATE
     Indication: Plasma cell myeloma
     Dosage: 4 MILLIGRAM
     Route: 048
     Dates: start: 20181010
  2. CYCLOPHOSPHAMIDE [Suspect]
     Active Substance: CYCLOPHOSPHAMIDE
     Indication: Plasma cell myeloma
     Dosage: 300 MILLIGRAM/SQ. METER
     Route: 065
     Dates: start: 20170408
  3. CYCLOPHOSPHAMIDE [Suspect]
     Active Substance: CYCLOPHOSPHAMIDE
     Dosage: 400 MILLIGRAM/SQ. METER
     Route: 065
     Dates: start: 20170818, end: 20180306
  4. CYCLOPHOSPHAMIDE [Suspect]
     Active Substance: CYCLOPHOSPHAMIDE
     Dosage: 300 MILLIGRAM/SQ. METER
     Route: 065
     Dates: start: 201810
  5. CYCLOPHOSPHAMIDE [Suspect]
     Active Substance: CYCLOPHOSPHAMIDE
     Dosage: 300 MILLIGRAM
     Route: 065
     Dates: start: 20181010
  6. ETOPOSIDE [Suspect]
     Active Substance: ETOPOSIDE
     Indication: Plasma cell myeloma
     Dosage: 40 MILLIGRAM/SQ. METER
     Route: 065
     Dates: start: 20170818
  7. CISPLATIN [Suspect]
     Active Substance: CISPLATIN
     Indication: Plasma cell myeloma
     Dosage: 10 MILLIGRAM/SQ. METER
     Route: 065
     Dates: start: 20170818

REACTIONS (6)
  - Respiratory failure [Fatal]
  - Renal failure [Unknown]
  - Hyperkalaemia [Unknown]
  - Hyperuricaemia [Unknown]
  - Hyperphosphataemia [Unknown]
  - Tumour lysis syndrome [Unknown]
